FAERS Safety Report 22275335 (Version 2)
Quarter: 2023Q2

REPORT INFORMATION
  Report Type: Spontaneous
  Country: PT (occurrence: PT)
  Receive Date: 20230502
  Receipt Date: 20230509
  Transmission Date: 20230721
  Serious: Yes (Hospitalization, Other)
  Sender: FDA-Public Use
  Company Number: PT-Hikma Pharmaceuticals-PT-H14001-23-01012

PATIENT
  Age: 57 Year
  Sex: Male

DRUGS (19)
  1. OXALIPLATIN [Suspect]
     Active Substance: OXALIPLATIN
     Indication: Metastases to lymph nodes
     Dosage: 100 MG/M2 ADMINISTERED EVERY 2 TO 3 WEEKS (DEPENDING ON BLOOD COUNTS)
     Dates: start: 201607, end: 201807
  2. OXALIPLATIN [Suspect]
     Active Substance: OXALIPLATIN
     Indication: Thyroid cancer metastatic
     Dosage: UNK,REDUCED BY 20%
     Dates: start: 201701
  3. OXALIPLATIN [Suspect]
     Active Substance: OXALIPLATIN
     Indication: Follicular thyroid cancer
     Dosage: UNK, Q3W
     Dates: start: 201806, end: 202006
  4. OXALIPLATIN [Suspect]
     Active Substance: OXALIPLATIN
     Indication: Metastases to the mediastinum
  5. OXALIPLATIN [Suspect]
     Active Substance: OXALIPLATIN
     Indication: Metastases to bone
  6. OXALIPLATIN [Suspect]
     Active Substance: OXALIPLATIN
     Indication: Metastases to lung
  7. GEMCITABINE [Suspect]
     Active Substance: GEMCITABINE
     Indication: Thyroid cancer metastatic
     Dosage: 1000 MG/M2 ADMINISTERED EVERY 2 TO 3 WEEKS (DEPENDING ON BLOOD COUNTS)
     Dates: start: 201607, end: 201701
  8. GEMCITABINE [Suspect]
     Active Substance: GEMCITABINE
     Indication: Follicular thyroid cancer
     Dosage: 27 CYCLES WITH EACH CYCLE BEING ADMINISTERED EVERY 2 TO 3 WEEKS, SIX ADDITIONAL CYCLES, EVERY 3 WEEK
     Dates: start: 201806, end: 202006
  9. GEMCITABINE [Suspect]
     Active Substance: GEMCITABINE
     Indication: Metastases to bone
  10. GEMCITABINE [Suspect]
     Active Substance: GEMCITABINE
     Indication: Metastases to lung
  11. GEMCITABINE [Suspect]
     Active Substance: GEMCITABINE
     Indication: Metastases to lymph nodes
  12. GEMCITABINE [Suspect]
     Active Substance: GEMCITABINE
     Indication: Metastases to the mediastinum
  13. HYDROCHLOROTHIAZIDE\LOSARTAN [Concomitant]
     Active Substance: HYDROCHLOROTHIAZIDE\LOSARTAN
     Indication: Hypertension
     Dosage: UNK
     Dates: start: 2014
  14. SUNITINIB [Concomitant]
     Active Substance: SUNITINIB
     Indication: Thyroid cancer metastatic
     Dosage: 50 MG, QD (4 WEEKS ON, 2 WEEKS OFF)
     Dates: start: 2015
  15. SUNITINIB [Concomitant]
     Active Substance: SUNITINIB
     Indication: Follicular thyroid cancer
     Dosage: 37.5 MG, QD LOWER DOSE
     Dates: start: 2015
  16. SUNITINIB [Concomitant]
     Active Substance: SUNITINIB
     Indication: Metastases to bone
  17. SUNITINIB [Concomitant]
     Active Substance: SUNITINIB
     Indication: Metastases to lung
  18. SUNITINIB [Concomitant]
     Active Substance: SUNITINIB
     Indication: Bone lesion
  19. OXYGEN [Concomitant]
     Active Substance: OXYGEN
     Indication: Dyspnoea
     Dosage: UNK
     Dates: start: 2015, end: 2017

REACTIONS (5)
  - Haematotoxicity [Unknown]
  - Off label use [Unknown]
  - Superior vena cava syndrome [Unknown]
  - Pneumonia [Unknown]
  - Peripheral sensory neuropathy [Unknown]

NARRATIVE: CASE EVENT DATE: 20160701
